FAERS Safety Report 8897264 (Version 1)
Quarter: 2012Q4

REPORT INFORMATION
  Report Type: 
  Country: US (occurrence: US)
  Receive Date: 20121108
  Receipt Date: 20121108
  Transmission Date: 20130627
  Serious: No
  Sender: FDA-Public Use
  Company Number: US-AMGEN-USASP2012025970

PATIENT
  Age: 17 Year
  Sex: Female

DRUGS (6)
  1. ENBREL [Suspect]
     Indication: RHEUMATOID ARTHRITIS
     Dosage: 25 mg, 2 times/wk
     Dates: start: 201111
  2. DIPHENHYDRAMINE [Concomitant]
     Dosage: UNK
  3. PREDNISONE [Concomitant]
     Dosage: UNK
  4. SERTRALINE HCL [Concomitant]
     Dosage: UNK
  5. OMEPRAZOLE                         /00661202/ [Concomitant]
     Dosage: UNK mg, UNK
  6. ACETAMINOPHEN [Concomitant]
     Dosage: UNK

REACTIONS (2)
  - Rheumatoid arthritis [Unknown]
  - Rubber sensitivity [Unknown]
